FAERS Safety Report 7579660-2 (Version None)
Quarter: 2011Q2

REPORT INFORMATION
  Report Type: 
  Country: None (occurrence: None)
  Receive Date: 20110629
  Receipt Date: 20110613
  Transmission Date: 20111010
  Serious: Yes (Hospitalization, Other)
  Sender: FDA-Public Use
  Company Number: US-BAYER-2010-002704

PATIENT
  Age: 36 Year
  Sex: Female
  Weight: 74.83 kg

DRUGS (6)
  1. SERTRALINE [Concomitant]
     Indication: DEPRESSION
     Dosage: 100 MG, UNK
     Dates: start: 20070308
  2. DIFFERIN [Concomitant]
     Dosage: UNK
     Dates: start: 20070101
  3. IMITREX [Concomitant]
     Indication: MIGRAINE
     Dosage: 100 MG, UNK
     Dates: start: 20070101
  4. LEVAQUIN [Concomitant]
     Dosage: 500 MG, UNK
     Dates: start: 20070101
  5. YASMIN [Suspect]
     Indication: CONTRACEPTION
     Dosage: 1 DF, QD
     Dates: start: 20030801, end: 20070510
  6. CEPHALEXIN [Concomitant]
     Dosage: 500 MG, UNK
     Dates: start: 20070101

REACTIONS (30)
  - MITRAL VALVE INCOMPETENCE [None]
  - VERTIGO [None]
  - DIPLOPIA [None]
  - PLEURAL EFFUSION [None]
  - ABASIA [None]
  - COGNITIVE DISORDER [None]
  - HEART INJURY [None]
  - SINUS TACHYCARDIA [None]
  - SINUS BRADYCARDIA [None]
  - MYALGIA [None]
  - EMOTIONAL DISTRESS [None]
  - LOSS OF CONSCIOUSNESS [None]
  - PULMONARY FIBROSIS [None]
  - FEAR OF DEATH [None]
  - PULMONARY HYPERTENSION [None]
  - PULMONARY EMBOLISM [None]
  - CARDIAC FAILURE CONGESTIVE [None]
  - HEADACHE [None]
  - ANAEMIA [None]
  - TRICUSPID VALVE INCOMPETENCE [None]
  - ANXIETY [None]
  - OEDEMA PERIPHERAL [None]
  - DEEP VEIN THROMBOSIS [None]
  - CEREBRAL HAEMORRHAGE [None]
  - PULMONARY INFARCTION [None]
  - URINARY TRACT INFECTION [None]
  - DEPRESSION [None]
  - PNEUMONIA [None]
  - PAIN [None]
  - RESPIRATORY DISTRESS [None]
